FAERS Safety Report 9164823 (Version 1)
Quarter: 2013Q1

REPORT INFORMATION
  Report Type: Spontaneous
  Country: US (occurrence: US)
  Receive Date: 20130315
  Receipt Date: 20130315
  Transmission Date: 20140127
  Serious: No
  Sender: FDA-Public Use
  Company Number: US-PFIZER INC-2013083858

PATIENT
  Age: 67 Year
  Sex: Female
  Weight: 61.22 kg

DRUGS (14)
  1. NEURONTIN [Suspect]
     Indication: NEUROPATHY PERIPHERAL
     Dosage: 4200 MG, 1X/DAY (SEVEN 600MG TABLETS IN DIVIDED DOSES 3X/DAY
     Route: 048
     Dates: end: 201302
  2. LIPITOR [Concomitant]
     Indication: BLOOD CHOLESTEROL INCREASED
     Dosage: 20 MG, 1X/DAY
  3. AMBIEN [Concomitant]
     Dosage: 10 MG, UNK
  4. ASACOL HD [Concomitant]
     Dosage: 800 MG, 3X/DAY
  5. CYMBALTA [Concomitant]
     Dosage: 90 MG, 1X/DAY
  6. DICYCLOMINE [Concomitant]
     Dosage: 20 MG (10MG TWO PILLS), 3X/DAY
  7. DOXAZOSIN [Concomitant]
     Dosage: 3 MG, 1X/DAY
  8. LISINOPRIL [Concomitant]
     Indication: HYPERTENSION
     Dosage: 20 MG, 1X/DAY
  9. MELOXICAM [Concomitant]
     Dosage: 15 MG, 1X/DAY
  10. OXYBUTYNIN [Concomitant]
     Dosage: 5 MG, 2X/DAY
  11. PRILOSEC [Concomitant]
     Dosage: 20 MG, 2X/DAY
  12. WELLBUTRIN SR [Concomitant]
     Dosage: 100 MG, 2X/DAY
  13. OXYCODONE [Concomitant]
     Indication: PAIN
     Dosage: 5 MG , EVERY 4-6 HOURS
  14. LORAZEPAM [Concomitant]
     Indication: ANXIETY
     Dosage: UNK, AS NEEDED

REACTIONS (3)
  - Overdose [Unknown]
  - Pain [Unknown]
  - Insomnia [Unknown]
